FAERS Safety Report 5725922-0 (Version None)
Quarter: 2008Q2

REPORT INFORMATION
  Report Type: 
  Country: None (occurrence: None)
  Receive Date: 20080429
  Receipt Date: 20080415
  Transmission Date: 20081010
  Serious: Yes (Other)
  Sender: FDA-Public Use
  Company Number: 47417

PATIENT

DRUGS (2)
  1. LORAZEPAM [Suspect]
  2. MIDAZOLAM HCL INJ. 5MG/ML (10ML) [Suspect]

REACTIONS (1)
  - MEDICATION ERROR [None]
